FAERS Safety Report 25467703 (Version 1)
Quarter: 2025Q2

REPORT INFORMATION
  Report Type: Spontaneous
  Country: US (occurrence: US)
  Receive Date: 20250623
  Receipt Date: 20250623
  Transmission Date: 20250717
  Serious: Yes (Life-Threatening, Hospitalization, Other)
  Sender: GLAND PHARMA LTD
  Company Number: US-GLANDPHARMA-US-2025GLNLIT01447

PATIENT
  Age: 17 Year
  Sex: Male

DRUGS (13)
  1. AMIODARONE HYDROCHLORIDE [Suspect]
     Active Substance: AMIODARONE HYDROCHLORIDE
     Indication: Atrial flutter
     Route: 065
  2. AMIODARONE HYDROCHLORIDE [Suspect]
     Active Substance: AMIODARONE HYDROCHLORIDE
     Route: 065
  3. AMIODARONE HYDROCHLORIDE [Suspect]
     Active Substance: AMIODARONE HYDROCHLORIDE
     Route: 065
  4. AMIODARONE [Suspect]
     Active Substance: AMIODARONE
     Indication: Atrial flutter
     Route: 048
  5. AMIODARONE [Suspect]
     Active Substance: AMIODARONE
     Route: 048
  6. OMAVELOXOLONE [Concomitant]
     Active Substance: OMAVELOXOLONE
     Route: 065
  7. ADENOSINE [Concomitant]
     Active Substance: ADENOSINE
     Indication: Atrial flutter
  8. METOPROLOL TARTRATE [Concomitant]
     Active Substance: METOPROLOL TARTRATE
     Indication: Heart rate
     Route: 065
  9. DOFETILIDE [Concomitant]
     Active Substance: DOFETILIDE
     Indication: Heart rate
  10. DOFETILIDE [Concomitant]
     Active Substance: DOFETILIDE
  11. DOFETILIDE [Concomitant]
     Active Substance: DOFETILIDE
  12. PROPRANOLOL [Concomitant]
     Active Substance: PROPRANOLOL HYDROCHLORIDE
     Indication: Cardiomyopathy
     Route: 065
  13. VERAPAMIL [Concomitant]
     Active Substance: VERAPAMIL HYDROCHLORIDE
     Indication: Cardiomyopathy
     Route: 065

REACTIONS (7)
  - Cardiogenic shock [Unknown]
  - Toxicity to various agents [Recovered/Resolved]
  - Tachyarrhythmia [Unknown]
  - Arrhythmia supraventricular [Unknown]
  - Atrial flutter [Unknown]
  - Hyperthyroidism [Unknown]
  - Product use in unapproved indication [Unknown]
